FAERS Safety Report 21462792 (Version 1)
Quarter: 2022Q4

REPORT INFORMATION
  Report Type: Spontaneous
  Country: FR (occurrence: FR)
  Receive Date: 20221017
  Receipt Date: 20221017
  Transmission Date: 20230113
  Serious: Yes (Hospitalization)
  Sender: FDA-Public Use
  Company Number: FR-BRISTOL-MYERS SQUIBB COMPANY-2022-120803

PATIENT

DRUGS (2)
  1. REBLOZYL [Suspect]
     Active Substance: LUSPATERCEPT-AAMT
     Indication: Product used for unknown indication
     Dosage: DOSE : 1MG ; 1.33MG;     FREQ : 2 ADMINISTRATIONS OF 1MG?3 ADMINISTRATIONS OF 1.33MG
     Route: 065
  2. REBLOZYL [Suspect]
     Active Substance: LUSPATERCEPT-AAMT
     Dosage: 1MG = 2 ADMINISTRATIONS THEN INCREASED TO 1.33 = 3 ADMINISTRATIONS.
     Route: 065

REACTIONS (2)
  - Asthenia [Unknown]
  - Haemoglobin decreased [Unknown]
